FAERS Safety Report 15345701 (Version 3)
Quarter: 2018Q3

REPORT INFORMATION
  Report Type: Report from Study
  Country: None (occurrence: GR)
  Receive Date: 20180904
  Receipt Date: 20180919
  Transmission Date: 20181010
  Serious: Yes (Hospitalization)
  Sender: FDA-Public Use
  Company Number: GR-ABBVIE-18P-066-2459111-00

PATIENT
  Age: 77 Year
  Sex: Male

DRUGS (12)
  1. CLONOTRIL [Concomitant]
     Active Substance: CLONAZEPAM
     Indication: INSOMNIA
     Route: 048
  2. NEXIUM [Concomitant]
     Active Substance: ESOMEPRAZOLE MAGNESIUM
     Indication: PRODUCT USED FOR UNKNOWN INDICATION
     Route: 048
  3. NODASIC [Concomitant]
     Indication: INSOMNIA
     Route: 048
  4. EFFEXOR [Concomitant]
     Active Substance: VENLAFAXINE HYDROCHLORIDE
     Indication: DEPRESSION
     Route: 048
  5. DUODOPA [Suspect]
     Active Substance: CARBIDOPA\LEVODOPA
     Indication: PARKINSON^S DISEASE
     Dosage: MD:8.5ML; CR:2.5ML/H;ED:2.9ML
     Route: 050
     Dates: start: 20160607
  6. DUODOPA [Suspect]
     Active Substance: CARBIDOPA\LEVODOPA
     Dosage: DUODOPA ADMINISTRATION ONLY AT NIGHT, DOSAGE DECREASED
     Route: 050
  7. MELOCIN [Concomitant]
     Indication: DEPRESSION
     Route: 048
  8. SOLIAN [Concomitant]
     Active Substance: AMISULPRIDE
     Indication: HALLUCINATION
     Route: 048
  9. ESPOZA [Concomitant]
     Indication: DEPRESSION
     Route: 048
     Dates: start: 20170403
  10. DOZILAX [Concomitant]
     Indication: DEMENTIA ALZHEIMER^S TYPE
     Route: 048
  11. OMEPRAZOLE. [Concomitant]
     Active Substance: OMEPRAZOLE
     Indication: PROPHYLAXIS
     Route: 048
  12. ARICEPT [Concomitant]
     Active Substance: DONEPEZIL HYDROCHLORIDE
     Indication: DEMENTIA
     Route: 048

REACTIONS (8)
  - Ileus [Recovering/Resolving]
  - Feeding disorder [Not Recovered/Not Resolved]
  - Respiratory tract infection [Not Recovered/Not Resolved]
  - Pneumonia [Recovering/Resolving]
  - Pulmonary sepsis [Unknown]
  - Dysphagia [Not Recovered/Not Resolved]
  - Device occlusion [Unknown]
  - Diarrhoea [Not Recovered/Not Resolved]

NARRATIVE: CASE EVENT DATE: 20180811
